FAERS Safety Report 15115739 (Version 2)
Quarter: 2018Q4

REPORT INFORMATION
  Report Type: Spontaneous
  Country: GB (occurrence: GB)
  Receive Date: 20180706
  Receipt Date: 20181009
  Transmission Date: 20190204
  Serious: Yes (Death, Hospitalization, Other)
  Sender: FDA-Public Use
  Company Number: GB-SAKK-2018SA168726AA

PATIENT
  Age: 42 Year
  Sex: Female

DRUGS (2)
  1. ALEMTUZUMAB [Suspect]
     Active Substance: ALEMTUZUMAB
     Indication: RELAPSING-REMITTING MULTIPLE SCLEROSIS
     Dosage: 12 MG, UNK FOR 5 DAYS
     Route: 041
  2. METHYLPREDNISOLONE. [Suspect]
     Active Substance: METHYLPREDNISOLONE
     Dosage: 1000 MG, UNK FOR 3 DAYS
     Route: 042

REACTIONS (13)
  - Tachypnoea [Unknown]
  - Malaise [Unknown]
  - Headache [Unknown]
  - Encephalitis [Unknown]
  - Respiratory distress [Unknown]
  - Brain death [Fatal]
  - C-reactive protein [Unknown]
  - Vomiting [Unknown]
  - Blood pressure increased [Unknown]
  - Unresponsive to stimuli [Unknown]
  - Listeriosis [Unknown]
  - Pyrexia [Unknown]
  - Tachycardia [Unknown]
